FAERS Safety Report 16198393 (Version 2)
Quarter: 2020Q3

REPORT INFORMATION
  Report Type: Spontaneous
  Country: US (occurrence: US)
  Receive Date: 20190415
  Receipt Date: 20200825
  Transmission Date: 20201102
  Serious: Yes (Hospitalization)
  Sender: FDA-Public Use
  Company Number: US-JNJFOC-20190406287

PATIENT
  Age: 74 Year
  Sex: Male

DRUGS (2)
  1. XARELTO [Suspect]
     Active Substance: RIVAROXABAN
     Indication: DEEP VEIN THROMBOSIS
     Dosage: 15 MG TWICE DAILY FOR 20 DAYS AND THEN 20 MG DAILY FOR 30 DAYS
     Route: 048
     Dates: start: 20170520, end: 20170525
  2. XARELTO [Suspect]
     Active Substance: RIVAROXABAN
     Dosage: 15 MG TWICE DAILY FOR 20 DAYS AND THEN 20 MG DAILY FOR 30 DAYS
     Route: 048
     Dates: start: 201705, end: 201706

REACTIONS (1)
  - Duodenal ulcer haemorrhage [Recovering/Resolving]

NARRATIVE: CASE EVENT DATE: 20170525
